FAERS Safety Report 5081574-7 (Version None)
Quarter: 2006Q3

REPORT INFORMATION
  Report Type: 
  Country: None (occurrence: None)
  Receive Date: 20060811
  Receipt Date: 20060803
  Transmission Date: 20061208
  Serious: Yes (Other)
  Sender: FDA-Public Use
  Company Number: 2006US-02927

PATIENT
  Age: 51 Year
  Sex: Female

DRUGS (5)
  1. ISOTRETINOIN [Suspect]
     Dosage: 100 MG, QD
     Dates: start: 20060327, end: 20060410
  2. AMBIEN [Concomitant]
  3. HYDROCODONE BITARTRATE [Concomitant]
  4. K-CLOR [Concomitant]
  5. ATENELOL [Concomitant]

REACTIONS (9)
  - ANXIETY [None]
  - DIZZINESS [None]
  - DRY EYE [None]
  - HEADACHE [None]
  - INSOMNIA [None]
  - OCULAR HYPERAEMIA [None]
  - OFF LABEL USE [None]
  - PSYCHOMOTOR HYPERACTIVITY [None]
  - SYNCOPE [None]
